FAERS Safety Report 4364345-6 (Version None)
Quarter: 2004Q2

REPORT INFORMATION
  Report Type: 
  Country: None (occurrence: None)
  Receive Date: 20040525
  Receipt Date: 20040218
  Transmission Date: 20050107
  Serious: No
  Sender: FDA-Public Use
  Company Number: US-BRISTOL-MYERS SQUIBB COMPANY-12509923

PATIENT
  Age: 51 Year
  Sex: Female
  Weight: 89 kg

DRUGS (5)
  1. CYTOXAN [Suspect]
     Indication: BREAST CANCER
     Route: 042
     Dates: start: 20040206, end: 20040206
  2. METHOTREXATE [Concomitant]
     Dosage: PRIOR TO CYTOXAN
     Route: 042
     Dates: start: 20040206, end: 20040206
  3. ANZEMET [Concomitant]
  4. DECADRON [Concomitant]
  5. FLUOROURACIL [Concomitant]

REACTIONS (1)
  - EYE SWELLING [None]
